FAERS Safety Report 14678352 (Version 1)
Quarter: 2018Q1

REPORT INFORMATION
  Report Type: Spontaneous
  Country: ES (occurrence: ES)
  Receive Date: 20180326
  Receipt Date: 20180326
  Transmission Date: 20180509
  Serious: Yes (Other)
  Sender: FDA-Public Use
  Company Number: ES-ABBVIE-18P-144-2294321-00

PATIENT
  Sex: Female

DRUGS (1)
  1. DEPAKINE [Suspect]
     Active Substance: VALPROATE SODIUM
     Indication: EPILEPSY
     Route: 065

REACTIONS (9)
  - Renal disorder [Unknown]
  - Weight increased [Recovered/Resolved]
  - Somnolence [Unknown]
  - Abdominal distension [Recovered/Resolved]
  - Blood cholesterol increased [Recovered/Resolved]
  - Fatigue [Unknown]
  - Depression [Unknown]
  - Drug ineffective [Unknown]
  - Amnesia [Unknown]
